FAERS Safety Report 9632988 (Version 1)
Quarter: 2013Q4

REPORT INFORMATION
  Report Type: Spontaneous
  Country: US (occurrence: US)
  Receive Date: 20131018
  Receipt Date: 20131018
  Transmission Date: 20140711
  Serious: Yes (Other)
  Sender: FDA-Public Use
  Company Number: US-PFIZER INC-2013297006

PATIENT
  Age: 62 Year
  Sex: Female
  Weight: 58.96 kg

DRUGS (4)
  1. NEURONTIN [Suspect]
     Indication: FIBROMYALGIA
     Dosage: UNK
     Dates: start: 2005
  2. NEURONTIN [Suspect]
     Indication: NEURALGIA
  3. BISOPROLOL FUMARATE [Concomitant]
     Indication: HYPERTENSION
     Dosage: 75 MG, 2X/DAY
  4. IRBESARTAN [Concomitant]
     Indication: HYPERTENSION
     Dosage: 10 MG, 2X/DAY

REACTIONS (6)
  - Off label use [Unknown]
  - Uterine disorder [Unknown]
  - Chest pain [Unknown]
  - Weight decreased [Unknown]
  - Blood disorder [Unknown]
  - Drug ineffective for unapproved indication [Unknown]
